FAERS Safety Report 16276042 (Version 1)
Quarter: 2019Q2

REPORT INFORMATION
  Report Type: Spontaneous
  Country: US (occurrence: US)
  Receive Date: 20190505
  Receipt Date: 20190505
  Transmission Date: 20190711
  Serious: Yes (Hospitalization)
  Sender: FDA-Public Use
  Company Number: PHEH2019US018618

PATIENT
  Age: 81 Year
  Sex: Male

DRUGS (4)
  1. VITAMIN D2 [Concomitant]
     Active Substance: ERGOCALCIFEROL
     Indication: PRODUCT USED FOR UNKNOWN INDICATION
     Route: 065
  2. RIVASTIGMINE. [Suspect]
     Active Substance: RIVASTIGMINE
     Indication: PRODUCT USED FOR UNKNOWN INDICATION
     Dosage: 4.6 MG, QD PATCH 5 (CM2)
     Route: 062
     Dates: start: 201812
  3. ASPIRIN. [Concomitant]
     Active Substance: ASPIRIN
     Indication: PRODUCT USED FOR UNKNOWN INDICATION
     Route: 065
  4. PROBIOTIC [Concomitant]
     Active Substance: PROBIOTICS NOS
     Indication: PRODUCT USED FOR UNKNOWN INDICATION
     Route: 065

REACTIONS (7)
  - Fall [Unknown]
  - Faeces discoloured [Unknown]
  - Constipation [Unknown]
  - Diarrhoea [Unknown]
  - Asthenia [Unknown]
  - Weight decreased [Unknown]
  - Pus in stool [Unknown]

NARRATIVE: CASE EVENT DATE: 201812
